FAERS Safety Report 4667475-4 (Version None)
Quarter: 2005Q2

REPORT INFORMATION
  Report Type: 
  Country: None (occurrence: None)
  Receive Date: 20050425
  Receipt Date: 20040608
  Transmission Date: 20051028
  Serious: Yes (Other)
  Sender: FDA-Public Use
  Company Number: 04-220-0084

PATIENT
  Age: 70 Year
  Sex: Male

DRUGS (1)
  1. MITOMYCIN [Suspect]
     Indication: BLADDER CANCER
     Dosage: 40MG INTRA-VESI WKLY
     Route: 043
     Dates: start: 20040504, end: 20040525

REACTIONS (2)
  - DYSGEUSIA [None]
  - ORAL PAIN [None]
